FAERS Safety Report 5121079-8 (Version None)
Quarter: 2006Q4

REPORT INFORMATION
  Report Type: 
  Country: None (occurrence: None)
  Receive Date: 20061002
  Receipt Date: 20060919
  Transmission Date: 20070319
  Serious: Yes (Other)
  Sender: FDA-Public Use
  Company Number: 2006113495

PATIENT
  Sex: Male

DRUGS (4)
  1. LYRICA [Suspect]
     Indication: NECK PAIN
     Dosage: 225 MG (75 MG, 3 IN 1 D)
     Dates: start: 20060801
  2. LYRICA [Suspect]
     Indication: PAIN IN EXTREMITY
     Dosage: 225 MG (75 MG, 3 IN 1 D)
     Dates: start: 20060801
  3. TIMOLOL MALEATE [Concomitant]
  4. COSOPT [Concomitant]

REACTIONS (4)
  - DRUG INEFFECTIVE [None]
  - HEADACHE [None]
  - INTRAOCULAR PRESSURE INCREASED [None]
  - VISION BLURRED [None]
